FAERS Safety Report 8553679-7 (Version None)
Quarter: 2012Q3

REPORT INFORMATION
  Report Type: 
  Country: None (occurrence: None)
  Receive Date: 20120731
  Receipt Date: 20120717
  Transmission Date: 20120928
  Serious: No
  Sender: FDA-Public Use
  Company Number: US-009507513-1207USA005951

PATIENT

DRUGS (2)
  1. JANUMET XR [Suspect]
     Dosage: 1000MG/50MG
     Route: 048
     Dates: start: 20120617
  2. VICTOZA [Concomitant]
     Indication: TYPE 2 DIABETES MELLITUS

REACTIONS (1)
  - RASH [None]
